FAERS Safety Report 16814942 (Version 1)
Quarter: 2019Q3

REPORT INFORMATION
  Report Type: Spontaneous
  Country: US (occurrence: US)
  Receive Date: 20190917
  Receipt Date: 20190917
  Transmission Date: 20191005
  Serious: No
  Sender: FDA-Public Use
  Company Number: US-ALLERGAN-1924369US

PATIENT
  Age: 71 Year
  Sex: Female

DRUGS (3)
  1. LINZESS [Suspect]
     Active Substance: LINACLOTIDE
     Dosage: 145 ?G
     Route: 065
     Dates: start: 20190411
  2. AMLODIPINE [Concomitant]
     Active Substance: AMLODIPINE BESYLATE
     Indication: BLOOD PRESSURE ABNORMAL
     Dosage: 5 MG
     Route: 065
  3. LINZESS [Suspect]
     Active Substance: LINACLOTIDE
     Indication: CONSTIPATION
     Dosage: 145 ?G
     Route: 065
     Dates: start: 201905

REACTIONS (8)
  - Diarrhoea [Recovered/Resolved]
  - Nausea [Unknown]
  - Drug ineffective [Unknown]
  - Product packaging quantity issue [Unknown]
  - Product dispensing error [Unknown]
  - Diarrhoea [Recovered/Resolved]
  - Functional gastrointestinal disorder [Recovered/Resolved]
  - Constipation [Unknown]

NARRATIVE: CASE EVENT DATE: 201904
